FAERS Safety Report 9848027 (Version 1)
Quarter: 2014Q1

REPORT INFORMATION
  Report Type: Spontaneous
  Country: US (occurrence: None)
  Receive Date: 20140124
  Receipt Date: 20140124
  Transmission Date: 20141002
  Serious: No
  Sender: FDA-Public Use
  Company Number: None

PATIENT
  Age: 52 Year
  Sex: Female
  Weight: 108.86 kg

DRUGS (1)
  1. METHYLPHENIDATE [Suspect]
     Indication: NARCOLEPSY
     Route: 048
     Dates: start: 20140107, end: 20140120

REACTIONS (3)
  - Nightmare [None]
  - Drug ineffective [None]
  - Product substitution issue [None]
